FAERS Safety Report 18066136 (Version 6)
Quarter: 2020Q3

REPORT INFORMATION
  Report Type: Spontaneous
  Country: US (occurrence: US)
  Receive Date: 20200724
  Receipt Date: 20200827
  Transmission Date: 20201103
  Serious: No
  Sender: FDA-Public Use
  Company Number: US-AMGEN-USASP2020118329

PATIENT
  Age: 74 Year
  Sex: Male
  Weight: 70.5 kg

DRUGS (3)
  1. CLADRIBINE. [Concomitant]
     Active Substance: CLADRIBINE
     Indication: HAIRY CELL LEUKAEMIA
  2. NEULASTA [Suspect]
     Active Substance: PEGFILGRASTIM
     Indication: HAIRY CELL LEUKAEMIA
     Dosage: 6 MILLIGRAM ONCE
     Route: 058
  3. NEULASTA [Suspect]
     Active Substance: PEGFILGRASTIM
     Indication: NEUTROPENIA
     Dosage: 6 MILLIGRAM ONCE
     Route: 058

REACTIONS (1)
  - Device occlusion [Unknown]

NARRATIVE: CASE EVENT DATE: 20200718
